FAERS Safety Report 5532806-X (Version None)
Quarter: 2007Q4

REPORT INFORMATION
  Report Type: 
  Country: None (occurrence: None)
  Receive Date: 20071204
  Receipt Date: 20071122
  Transmission Date: 20080405
  Serious: Yes (Life-Threatening)
  Sender: FDA-Public Use
  Company Number: CA-BAYER-200715161GDS

PATIENT
  Age: 81 Year
  Sex: Female

DRUGS (6)
  1. AVELOX [Suspect]
     Indication: PNEUMONIA
     Dosage: TOTAL DAILY DOSE: 400 MG  UNIT DOSE: 400 MG
     Route: 048
     Dates: start: 20070413, end: 20070422
  2. COUMADIN [Suspect]
     Indication: PHLEBITIS
     Dosage: TOTAL DAILY DOSE: 4 MG  UNIT DOSE: 4 MG
     Route: 048
     Dates: start: 20070101
  3. DIGOXIN [Concomitant]
     Indication: DRUG USE FOR UNKNOWN INDICATION
     Route: 048
  4. K-DUR 10 [Concomitant]
     Indication: DRUG USE FOR UNKNOWN INDICATION
     Route: 048
  5. LASIX [Concomitant]
     Indication: DRUG USE FOR UNKNOWN INDICATION
     Dosage: TOTAL DAILY DOSE: 80 MG
     Route: 048
  6. PANTOPRAZOLE SODIUM [Concomitant]
     Indication: DRUG USE FOR UNKNOWN INDICATION
     Dosage: TOTAL DAILY DOSE: 40 MG
     Route: 048

REACTIONS (1)
  - PROTHROMBIN TIME PROLONGED [None]
